FAERS Safety Report 5157573-3 (Version None)
Quarter: 2006Q4

REPORT INFORMATION
  Report Type: 
  Country: None (occurrence: None)
  Receive Date: 20061127
  Receipt Date: 20061122
  Transmission Date: 20070319
  Serious: Yes (Hospitalization)
  Sender: FDA-Public Use
  Company Number: J200605024

PATIENT
  Age: 61 Year
  Sex: Female

DRUGS (5)
  1. SAWACILLIN [Suspect]
     Indication: DRUG USE FOR UNKNOWN INDICATION
     Dosage: 750MG PER DAY
     Route: 048
     Dates: start: 20061110, end: 20061110
  2. LOXONIN [Concomitant]
     Route: 048
     Dates: start: 20061110
  3. CHLORPHENIRAMINE MALEATE [Concomitant]
     Route: 048
     Dates: start: 20061110
  4. RESPLEN [Concomitant]
     Dates: start: 20061110
  5. TANATRIL [Concomitant]
     Route: 048
     Dates: start: 20061002

REACTIONS (2)
  - PYREXIA [None]
  - RASH [None]
